FAERS Safety Report 15927813 (Version 2)
Quarter: 2019Q1

REPORT INFORMATION
  Report Type: Spontaneous
  Country: US (occurrence: US)
  Receive Date: 20190205
  Receipt Date: 20190219
  Transmission Date: 20190417
  Serious: No
  Sender: FDA-Public Use
  Company Number: US-ALLERGAN-1857709US

PATIENT

DRUGS (5)
  1. VOLLURE [Concomitant]
     Indication: SKIN WRINKLING
     Dosage: UNK, SINGLE
     Dates: start: 20180606, end: 20180606
  2. VOLBELLA [Concomitant]
     Active Substance: HYALURONIC ACID
     Indication: SKIN WRINKLING
     Dosage: UNK, SINGLE
     Dates: start: 20180606, end: 20180606
  3. BOTOX [Suspect]
     Active Substance: ONABOTULINUMTOXINA
     Indication: SKIN WRINKLING
     Dosage: UNK, SINGLE
     Route: 030
     Dates: start: 20180604, end: 20180604
  4. BOTOX [Suspect]
     Active Substance: ONABOTULINUMTOXINA
     Indication: SKIN WRINKLING
  5. VOLUMA [Concomitant]
     Active Substance: UNSPECIFIED INGREDIENT
     Indication: SKIN WRINKLING
     Dosage: 3 UNK, UNK
     Dates: start: 20180606, end: 20180606

REACTIONS (1)
  - Off label use [Unknown]
